FAERS Safety Report 5038131-8 (Version None)
Quarter: 2006Q2

REPORT INFORMATION
  Report Type: 
  Country: None (occurrence: None)
  Receive Date: 20060626
  Receipt Date: 20060616
  Transmission Date: 20061013
  Serious: Yes (Hospitalization)
  Sender: FDA-Public Use
  Company Number: TPA2004A00288

PATIENT
  Age: 41 Year
  Sex: Male

DRUGS (5)
  1. ACTOS [Suspect]
     Indication: DIABETES MELLITUS
     Dosage: PER ORAL
     Route: 048
     Dates: start: 20010101
  2. INSULIN [Concomitant]
  3. NORVASC [Concomitant]
  4. ZESTRIL [Concomitant]
  5. ATENOLOL [Concomitant]

REACTIONS (7)
  - BLOOD PRESSURE INADEQUATELY CONTROLLED [None]
  - CONDITION AGGRAVATED [None]
  - FLUID RETENTION [None]
  - MACULAR OEDEMA [None]
  - RETINAL NEOVASCULARISATION [None]
  - VISUAL ACUITY REDUCED [None]
  - WEIGHT INCREASED [None]
